FAERS Safety Report 4450950-5 (Version None)
Quarter: 2004Q3

REPORT INFORMATION
  Report Type: 
  Country: None (occurrence: None)
  Receive Date: 20040916
  Receipt Date: 20040106
  Transmission Date: 20050211
  Serious: Yes (Other)
  Sender: FDA-Public Use
  Company Number: US-BRISTOL-MYERS SQUIBB COMPANY-12471694

PATIENT
  Sex: Female

DRUGS (8)
  1. STADOL [Suspect]
  2. HYDROCODONE TARTRATE+ACETAMINOPHEN [Concomitant]
  3. ALPRAZOLAM [Concomitant]
  4. BUTALBITAL+APAP+CAFFEINE [Concomitant]
     Indication: ARTHRITIS
  5. BUTALBITAL+APAP+CAFFEINE [Concomitant]
     Indication: HEADACHE
  6. LORAZEPAM [Concomitant]
  7. LORCET-HD [Concomitant]
  8. PROCARDIA XL [Concomitant]
     Indication: BLOOD PRESSURE

REACTIONS (2)
  - DEPENDENCE [None]
  - PRESBYOPIA [None]
